FAERS Safety Report 11303462 (Version 1)
Quarter: 2015Q3

REPORT INFORMATION
  Report Type: Spontaneous
  Country: US (occurrence: US)
  Receive Date: 20150723
  Receipt Date: 20150723
  Transmission Date: 20151125
  Serious: Yes (Hospitalization, Other)
  Sender: FDA-Public Use
  Company Number: US-SHIRE-US201505396

PATIENT
  Age: 29 Year
  Sex: Female
  Weight: 58.96 kg

DRUGS (6)
  1. VYVANSE [Suspect]
     Active Substance: LISDEXAMFETAMINE DIMESYLATE
     Dosage: 60 MG, 1X/DAY:QD, DAILY
     Route: 048
     Dates: start: 201505, end: 201505
  2. SEROQUEL [Concomitant]
     Active Substance: QUETIAPINE FUMARATE
     Indication: TACHYPHRENIA
     Dosage: 300 MG, 1X/DAY:QD, AT BEDTIME
     Route: 048
  3. LYRICA [Concomitant]
     Active Substance: PREGABALIN
     Indication: NERVE INJURY
     Dosage: 200 MG, 3X/DAY:TID
     Route: 048
     Dates: start: 2009
  4. VYVANSE [Suspect]
     Active Substance: LISDEXAMFETAMINE DIMESYLATE
     Indication: ATTENTION DEFICIT/HYPERACTIVITY DISORDER
     Dosage: 50 MG, 1X/DAY:QD, DAILY
     Route: 048
     Dates: start: 2015, end: 2015
  5. SEROQUEL [Concomitant]
     Active Substance: QUETIAPINE FUMARATE
     Indication: OBSESSIVE-COMPULSIVE DISORDER
  6. VYVANSE [Suspect]
     Active Substance: LISDEXAMFETAMINE DIMESYLATE
     Dosage: 50 MG, 1X/DAY:QD, DAILY
     Route: 048
     Dates: start: 2015

REACTIONS (6)
  - Depression [Recovered/Resolved with Sequelae]
  - Restlessness [Not Recovered/Not Resolved]
  - Aggression [Recovered/Resolved]
  - Drug dose omission [Not Recovered/Not Resolved]
  - Psychomotor hyperactivity [Unknown]
  - Disturbance in attention [Not Recovered/Not Resolved]

NARRATIVE: CASE EVENT DATE: 2015
